FAERS Safety Report 16697156 (Version 1)
Quarter: 2019Q3

REPORT INFORMATION
  Report Type: Spontaneous
  Country: US (occurrence: US)
  Receive Date: 20190813
  Receipt Date: 20190813
  Transmission Date: 20191004
  Serious: No
  Sender: FDA-Public Use
  Company Number: US-PFIZER INC-2019341651

PATIENT
  Weight: 150 kg

DRUGS (1)
  1. ARGATROBAN. [Suspect]
     Active Substance: ARGATROBAN
     Dosage: UNK, UNK (2.78MCG/KG/MIN AND THE VOLUME TO BE INFUSED WAS 734ML AT 25 ML/HOUR)
     Route: 042

REACTIONS (1)
  - Injury [Unknown]

NARRATIVE: CASE EVENT DATE: 20190728
